FAERS Safety Report 16417339 (Version 2)
Quarter: 2019Q3

REPORT INFORMATION
  Report Type: Report from Study
  Country: GB (occurrence: GB)
  Receive Date: 20190611
  Receipt Date: 20190729
  Transmission Date: 20191004
  Serious: Yes (Other)
  Sender: FDA-Public Use
  Company Number: GB-BAUSCH-BL-2019-016485

PATIENT
  Age: 31 Year
  Sex: Male
  Weight: 86.2 kg

DRUGS (8)
  1. PREDNISOLONE ACETATE. [Suspect]
     Active Substance: PREDNISOLONE ACETATE
     Dosage: 1 GTT DROPS, TID
     Route: 047
     Dates: start: 20190506
  2. PREDNISOLONE ACETATE. [Suspect]
     Active Substance: PREDNISOLONE ACETATE
     Indication: GLIOBLASTOMA
     Dosage: 1 GTT DROPS, TID
     Route: 047
     Dates: start: 20190415, end: 20190502
  3. ABT-414 [Suspect]
     Active Substance: DEPATUXIZUMAB MAFODOTIN
     Dosage: CYCLICAL (DAY 1 OF WEEKS 1, 3 AND 5 OF EACH 28 DAY CYCLE)
     Route: 042
     Dates: start: 20190508
  4. TEMOZOLOMIDE. [Suspect]
     Active Substance: TEMOZOLOMIDE
     Indication: GLIOBLASTOMA
     Route: 048
     Dates: start: 20190417, end: 20190430
  5. TEMOZOLOMIDE. [Suspect]
     Active Substance: TEMOZOLOMIDE
     Route: 048
     Dates: start: 20190508
  6. PARACETAMOL [Concomitant]
     Active Substance: ACETAMINOPHEN
     Indication: HEADACHE
     Dosage: AS REQUIRED
     Route: 048
     Dates: start: 20190428
  7. ONDANSETRON [Concomitant]
     Active Substance: ONDANSETRON
     Indication: PROPHYLAXIS OF NAUSEA AND VOMITING
     Route: 048
     Dates: start: 20190417
  8. ABT-414 [Suspect]
     Active Substance: DEPATUXIZUMAB MAFODOTIN
     Indication: GLIOBLASTOMA
     Dosage: CYCLICAL (DAY 1 OF WEEKS 1, 3 AND 5 OF EACH 28 DAY CYCLE)
     Route: 042
     Dates: start: 20190417, end: 20190417

REACTIONS (3)
  - Alanine aminotransferase increased [Recovered/Resolved]
  - Gamma-glutamyltransferase increased [Unknown]
  - Aspartate aminotransferase increased [Unknown]

NARRATIVE: CASE EVENT DATE: 2019
